FAERS Safety Report 5088447-4 (Version None)
Quarter: 2006Q3

REPORT INFORMATION
  Report Type: 
  Country: None (occurrence: None)
  Receive Date: 20060822
  Receipt Date: 20060809
  Transmission Date: 20061208
  Serious: Yes (Other)
  Sender: FDA-Public Use
  Company Number: 2006098770

PATIENT
  Age: 72 Year
  Sex: Male

DRUGS (2)
  1. EPANUTIN          (PHENYTOIN SODIUM) [Suspect]
     Indication: EPILEPSY
     Dosage: 300 MG (300 MG, 1 IN 1 D) ORAL
     Route: 048
     Dates: start: 19970101
  2. INFLUENZA VACCINE             (INFLUENZA VACCINE) [Suspect]
     Indication: INFLUENZA IMMUNISATION
     Dates: start: 20051001

REACTIONS (3)
  - CONVULSION [None]
  - DRUG INTERACTION [None]
  - NERVOUS SYSTEM DISORDER [None]
